FAERS Safety Report 5850934-6 (Version None)
Quarter: 2008Q3

REPORT INFORMATION
  Report Type: 
  Country: None (occurrence: None)
  Receive Date: 20080820
  Receipt Date: 20080811
  Transmission Date: 20090109
  Serious: Yes (Hospitalization, Other)
  Sender: FDA-Public Use
  Company Number: PHHY2008FR18010

PATIENT
  Age: 58 Year
  Sex: Female

DRUGS (2)
  1. ZOMETA [Suspect]
     Indication: OSTEOPOROSIS
     Dosage: 4 MG/KG, FOR EVERY 6 MONTHS
     Route: 042
     Dates: start: 20041202
  2. AREDIA [Suspect]
     Indication: OSTEOPOROSIS
     Dosage: 60 MG, FOR EVERY 3 MONTHS
     Dates: start: 20021007, end: 20040503

REACTIONS (14)
  - DENTAL IMPLANTATION [None]
  - HYPERCALCAEMIA [None]
  - HYPERPARATHYROIDISM [None]
  - MEDICAL DEVICE IMPLANTATION [None]
  - MEDICAL DEVICE REMOVAL [None]
  - NUCLEAR MAGNETIC RESONANCE IMAGING ABNORMAL [None]
  - OSTEITIS [None]
  - OSTEONECROSIS [None]
  - PARATHYROID TUMOUR BENIGN [None]
  - PRIMARY SEQUESTRUM [None]
  - SCINTIGRAPHY [None]
  - SURGERY [None]
  - TOOTH FRACTURE [None]
  - TOOTHACHE [None]
